FAERS Safety Report 4623880-3 (Version None)
Quarter: 2005Q1

REPORT INFORMATION
  Report Type: 
  Country: None (occurrence: None)
  Receive Date: 20050331
  Receipt Date: 20050321
  Transmission Date: 20050727
  Serious: Yes (Hospitalization)
  Sender: FDA-Public Use
  Company Number: US-JNJFOC-20050305754

PATIENT
  Sex: Female
  Weight: 99.79 kg

DRUGS (3)
  1. DURAGESIC-100 [Suspect]
     Route: 062
  2. NORCO [Concomitant]
     Route: 049
  3. NORCO [Concomitant]
     Indication: THERAPEUTIC RESPONSE DECREASED
     Route: 049

REACTIONS (2)
  - APPLICATION SITE ERYTHEMA [None]
  - JOINT INJURY [None]
